FAERS Safety Report 4662778-1 (Version None)
Quarter: 2005Q2

REPORT INFORMATION
  Report Type: 
  Country: None (occurrence: None)
  Receive Date: 20050512
  Receipt Date: 20050425
  Transmission Date: 20051028
  Serious: Yes (Hospitalization)
  Sender: FDA-Public Use
  Company Number: FR_050406305

PATIENT
  Age: 30 Year
  Sex: Female

DRUGS (2)
  1. PROZAC [Suspect]
     Dosage: 20 MG/1 DAY
     Dates: start: 20040701, end: 20050108
  2. TRAMADOL HCL [Concomitant]

REACTIONS (8)
  - CAESAREAN SECTION [None]
  - CONVULSION NEONATAL [None]
  - DRUG EXPOSURE DURING PREGNANCY [None]
  - DRUG WITHDRAWAL SYNDROME NEONATAL [None]
  - HYPERTENSION [None]
  - HYPOGLYCAEMIA NEONATAL [None]
  - PREMATURE BABY [None]
  - SMALL FOR DATES BABY [None]
